FAERS Safety Report 5614025-1 (Version None)
Quarter: 2008Q1

REPORT INFORMATION
  Report Type: 
  Country: None (occurrence: None)
  Receive Date: 20080205
  Receipt Date: 20080129
  Transmission Date: 20080703
  Serious: Yes (Other)
  Sender: FDA-Public Use
  Company Number: FR-ALLERGAN-0801087US

PATIENT
  Sex: Male

DRUGS (2)
  1. COMBIGAN [Suspect]
     Indication: OCULAR HYPERTENSION
     Route: 047
  2. AZOPT [Concomitant]
     Indication: OCULAR HYPERTENSION
     Route: 047

REACTIONS (1)
  - CORNEAL OEDEMA [None]
